FAERS Safety Report 7745341-5 (Version None)
Quarter: 2011Q3

REPORT INFORMATION
  Report Type: 
  Country: None (occurrence: None)
  Receive Date: 20110829
  Receipt Date: 20110818
  Transmission Date: 20111222
  Serious: Yes (Other)
  Sender: FDA-Public Use
  Company Number: 2011SP036771

PATIENT
  Sex: Male

DRUGS (3)
  1. NASONEX [Suspect]
     Indication: MYCOTIC ALLERGY
     Dosage: ;PRN;
     Dates: start: 20030101, end: 20110801
  2. NASONEX [Suspect]
     Indication: SEASONAL ALLERGY
     Dosage: ;PRN;
     Dates: start: 20030101, end: 20110801
  3. AMLODIPINE BESYLATE AND OLMESARTAN MEDOXOMIL [Suspect]
     Indication: HYPERTENSION
     Dosage: 1 DF; QD; PO
     Route: 048
     Dates: start: 20090101

REACTIONS (1)
  - OSTEOPOROSIS [None]
